FAERS Safety Report 8113997-3 (Version None)
Quarter: 2012Q1

REPORT INFORMATION
  Report Type: 
  Country: None (occurrence: None)
  Receive Date: 20120203
  Receipt Date: 20120131
  Transmission Date: 20120608
  Serious: Yes (Other)
  Sender: FDA-Public Use
  Company Number: GB-MERCK-1202GBR00009

PATIENT
  Sex: Male

DRUGS (4)
  1. FLECAINIDE ACETATE [Suspect]
     Route: 065
  2. ZOCOR [Suspect]
     Route: 048
  3. RAMIPRIL [Suspect]
     Indication: HYPERTENSION
     Route: 048
     Dates: start: 20100401, end: 20100101
  4. BISOPROLOL FUMARATE [Suspect]
     Route: 065

REACTIONS (2)
  - PALPITATIONS [None]
  - ATRIAL FIBRILLATION [None]
